FAERS Safety Report 5264195-2 (Version None)
Quarter: 2007Q1

REPORT INFORMATION
  Report Type: 
  Country: None (occurrence: None)
  Receive Date: 20070309
  Receipt Date: 20070227
  Transmission Date: 20070707
  Serious: Yes (Disabling, Other)
  Sender: FDA-Public Use
  Company Number: 2007RR-06023

PATIENT
  Age: 72 Year
  Sex: Male
  Weight: 95 kg

DRUGS (5)
  1. SIMVASTATIN [Suspect]
     Dosage: 40 MG, ORAL
     Route: 048
     Dates: start: 20061102, end: 20061105
  2. ARTHROTEC [Concomitant]
  3. BENDROFLUMETHIAZIDE (BENDROFLUMETHIAZIDE) [Concomitant]
  4. BISOPROLOL FUMARATE [Concomitant]
  5. CO-CODAMOL [Concomitant]

REACTIONS (6)
  - ARTHRALGIA [None]
  - DYSPNOEA EXERTIONAL [None]
  - GAIT DISTURBANCE [None]
  - HYPOAESTHESIA [None]
  - INSOMNIA [None]
  - PAIN IN EXTREMITY [None]
